FAERS Safety Report 11114728 (Version 1)
Quarter: 2015Q2

REPORT INFORMATION
  Report Type: Spontaneous
  Country: US (occurrence: US)
  Receive Date: 20150515
  Receipt Date: 20150515
  Transmission Date: 20150821
  Serious: No
  Sender: FDA-Public Use
  Company Number: US-ASTRAZENECA-2015SE42123

PATIENT
  Sex: Female

DRUGS (7)
  1. CELEBREX [Suspect]
     Active Substance: CELECOXIB
     Route: 065
  2. SERTRALINE [Suspect]
     Active Substance: SERTRALINE HYDROCHLORIDE
     Route: 065
  3. LIVALO [Suspect]
     Active Substance: PITAVASTATIN CALCIUM
     Route: 065
  4. ZETIA [Suspect]
     Active Substance: EZETIMIBE
     Route: 065
  5. HCTZ [Suspect]
     Active Substance: HYDROCHLOROTHIAZIDE
     Dosage: HALIF OF 25 MG
     Route: 065
  6. CRESTOR [Suspect]
     Active Substance: ROSUVASTATIN CALCIUM
     Route: 048
  7. HCTZ [Suspect]
     Active Substance: HYDROCHLOROTHIAZIDE
     Route: 065

REACTIONS (4)
  - Gait disturbance [Unknown]
  - Drug ineffective [Unknown]
  - Myalgia [Unknown]
  - Arthralgia [Unknown]
